FAERS Safety Report 15011113 (Version 4)
Quarter: 2019Q2

REPORT INFORMATION
  Report Type: Report from Study
  Country: ES (occurrence: ES)
  Receive Date: 20180614
  Receipt Date: 20190621
  Transmission Date: 20190711
  Serious: Yes (Hospitalization, Other)
  Sender: FDA-Public Use
  Company Number: ES-PFIZER INC-2017519226

PATIENT
  Age: 66 Year
  Sex: Male
  Weight: 83 kg

DRUGS (8)
  1. FLUOROURACIL. [Suspect]
     Active Substance: FLUOROURACIL
     Dosage: 740 MG, CYCLIC
     Route: 040
     Dates: start: 20150616, end: 20150616
  2. FLUOROURACIL. [Suspect]
     Active Substance: FLUOROURACIL
     Indication: COLORECTAL CANCER METASTATIC
     Dosage: 4440 MG, CYCLIC
     Route: 041
     Dates: start: 20150616, end: 20150616
  3. AFLIBERCEPT [Suspect]
     Active Substance: AFLIBERCEPT
     Indication: COLORECTAL CANCER METASTATIC
     Dosage: 296 MG, CYCLIC
     Route: 041
     Dates: start: 20150616, end: 20150616
  4. IRINOTECAN HCL [Suspect]
     Active Substance: IRINOTECAN HYDROCHLORIDE
     Indication: COLORECTAL CANCER METASTATIC
     Dosage: 333 MG, CYCLIC
     Route: 041
     Dates: start: 20150616, end: 20150616
  5. BELLADONNA ALKALOIDS [Concomitant]
     Active Substance: BELLADONNA ALKALOIDS
     Indication: PROPHYLAXIS
     Dosage: UNK
     Dates: start: 20150616, end: 20150616
  6. LEUCOVORIN /00566701/ [Suspect]
     Active Substance: LEUCOVORIN
     Indication: COLORECTAL CANCER METASTATIC
     Dosage: 740 MG, CYCLIC
     Route: 041
     Dates: start: 20150616, end: 20150616
  7. PEGYLATED LIPOSOMAL IRINOTECAN [Suspect]
     Active Substance: IRINOTECAN HYDROCHLORIDE
     Indication: COLORECTAL CANCER METASTATIC
     Dosage: 333 MG, CYCLIC
     Route: 041
     Dates: start: 20150616
  8. OMEPRAZOL [Concomitant]
     Active Substance: OMEPRAZOLE
     Dosage: UNK
     Dates: start: 201506

REACTIONS (8)
  - Asthenia [Not Recovered/Not Resolved]
  - Hiccups [Not Recovered/Not Resolved]
  - Overdose [Unknown]
  - Stoma site haemorrhage [Recovered/Resolved with Sequelae]
  - Decreased appetite [Not Recovered/Not Resolved]
  - Gastritis [Not Recovered/Not Resolved]
  - Condition aggravated [Recovered/Resolved]
  - Anaemia [Recovered/Resolved]

NARRATIVE: CASE EVENT DATE: 20150616
